FAERS Safety Report 5147654-2 (Version None)
Quarter: 2006Q4

REPORT INFORMATION
  Report Type: 
  Country: None (occurrence: None)
  Receive Date: 20060915
  Receipt Date: 20060707
  Transmission Date: 20070319
  Serious: Yes (Other)
  Sender: FDA-Public Use
  Company Number: S06-USA-02559-01

PATIENT
  Age: 55 Year
  Sex: Female

DRUGS (5)
  1. CELEXA [Suspect]
     Indication: DEPRESSION
     Dates: start: 20000101, end: 20000101
  2. CALCIUM WITH VITAMIN D [Concomitant]
  3. VITAMINS NOS [Concomitant]
  4. ESTRACE [Concomitant]
  5. PROVERA [Concomitant]

REACTIONS (5)
  - AGITATION [None]
  - HEPATIC ENZYME INCREASED [None]
  - MUSCULAR WEAKNESS [None]
  - SUICIDAL IDEATION [None]
  - WEIGHT INCREASED [None]
